FAERS Safety Report 4265668-1 (Version None)
Quarter: 2004Q1

REPORT INFORMATION
  Report Type: 
  Country: None (occurrence: None)
  Receive Date: 20040107
  Receipt Date: 20021224
  Transmission Date: 20041129
  Serious: Yes (Hospitalization)
  Sender: FDA-Public Use
  Company Number: FR-GLAXOSMITHKLINE-B0286202B

PATIENT
  Age: 68 Year
  Sex: Male
  Weight: 79 kg

DRUGS (3)
  1. TOPOTECAN [Suspect]
     Indication: GLIOBLASTOMA
     Dosage: 1.71MG PER DAY
     Route: 042
     Dates: start: 20021202, end: 20021206
  2. NEURONTIN [Concomitant]
     Indication: CONVULSION PROPHYLAXIS
     Dosage: 1800MG PER DAY
     Route: 048
     Dates: start: 20021001
  3. RADIOTHERAPY [Concomitant]
     Indication: GLIOBLASTOMA

REACTIONS (6)
  - AGITATION [None]
  - CONDITION AGGRAVATED [None]
  - NERVOUS SYSTEM DISORDER [None]
  - OEDEMA [None]
  - RADIATION INJURY [None]
  - SOMNOLENCE [None]
